FAERS Safety Report 10133421 (Version 2)
Quarter: 2014Q2

REPORT INFORMATION
  Report Type: Spontaneous
  Country: IN (occurrence: IN)
  Receive Date: 20140428
  Receipt Date: 20140429
  Transmission Date: 20141212
  Serious: Yes (Hospitalization, Other)
  Sender: FDA-Public Use
  Company Number: IN-ELI_LILLY_AND_COMPANY-IN201404007617

PATIENT
  Age: 32 Year
  Sex: Male

DRUGS (5)
  1. INSULIN HUMAN [Suspect]
     Indication: TYPE 1 DIABETES MELLITUS
     Dosage: 15 U, TID
     Route: 058
  2. INSULIN HUMAN [Suspect]
     Dosage: UNK UNK, OTHER
     Route: 058
  3. DIGOXIN [Suspect]
     Indication: OVERDOSE
     Dosage: 25 MG, OTHER
     Route: 048
  4. PROPRANOLOL [Suspect]
     Indication: OVERDOSE
     Dosage: 2 G, OTHER
     Route: 048
  5. INSULIN GLARGINE [Concomitant]
     Indication: TYPE 1 DIABETES MELLITUS
     Dosage: 30 U, QD
     Route: 058

REACTIONS (9)
  - Intentional overdose [Recovered/Resolved]
  - Suicide attempt [Recovered/Resolved]
  - Nausea [Recovered/Resolved]
  - Vomiting [Recovered/Resolved]
  - Hypoglycaemia [Recovered/Resolved]
  - Bradycardia [Recovered/Resolved]
  - Drug level increased [Unknown]
  - Toxicity to various agents [Unknown]
  - Drug level increased [Unknown]
